FAERS Safety Report 4333230-8 (Version None)
Quarter: 2004Q2

REPORT INFORMATION
  Report Type: 
  Country: None (occurrence: None)
  Receive Date: 20040405
  Receipt Date: 20040405
  Transmission Date: 20050107
  Serious: Yes (Hospitalization)
  Sender: FDA-Public Use
  Company Number: None

PATIENT
  Age: 26 Year
  Sex: Male
  Weight: 95 kg

DRUGS (2)
  1. NAFCILLIN SODIUM [Suspect]
     Indication: STAPHYLOCOCCAL INFECTION
     Dosage: IV
     Route: 042
     Dates: start: 20040321, end: 20040325
  2. DOLASETRON [Concomitant]

REACTIONS (2)
  - ANAPHYLACTIC REACTION [None]
  - INJECTION SITE RASH [None]
